FAERS Safety Report 7785020-1 (Version None)
Quarter: 2011Q3

REPORT INFORMATION
  Report Type: 
  Country: None (occurrence: None)
  Receive Date: 20110929
  Receipt Date: 20110922
  Transmission Date: 20111222
  Serious: Yes (Death)
  Sender: FDA-Public Use
  Company Number: SE-BRISTOL-MYERS SQUIBB COMPANY-16106569

PATIENT
  Sex: Female

DRUGS (3)
  1. PACLITAXEL [Suspect]
     Indication: BREAST CANCER METASTATIC
  2. EPIRUBICIN [Suspect]
     Indication: BREAST CANCER METASTATIC
  3. TRASTUZUMAB [Suspect]
     Indication: BREAST CANCER METASTATIC

REACTIONS (1)
  - CARDIOMYOPATHY [None]
